FAERS Safety Report 7289403-8 (Version None)
Quarter: 2011Q1

REPORT INFORMATION
  Report Type: 
  Country: None (occurrence: None)
  Receive Date: 20110211
  Receipt Date: 20110201
  Transmission Date: 20110831
  Serious: Yes (Other)
  Sender: FDA-Public Use
  Company Number: US-BAYER-2011-011003

PATIENT
  Sex: Female

DRUGS (2)
  1. CIPRO [Suspect]
     Indication: SKIN INFECTION
  2. CIPRO [Suspect]
     Indication: EAR INFECTION
     Dosage: 500 MG, BID
     Dates: start: 20110118, end: 20110122

REACTIONS (3)
  - ARTHRITIS [None]
  - MUSCULAR WEAKNESS [None]
  - OEDEMA PERIPHERAL [None]
